FAERS Safety Report 10557147 (Version 2)
Quarter: 2014Q4

REPORT INFORMATION
  Report Type: Spontaneous
  Country: JP (occurrence: JP)
  Receive Date: 20141031
  Receipt Date: 20141031
  Transmission Date: 20150529
  Serious: Yes (Hospitalization)
  Sender: FDA-Public Use
  Company Number: JP-ASTRAZENECA-2014SE76964

PATIENT
  Age: 85 Year
  Sex: Male

DRUGS (6)
  1. CRESTOR [Suspect]
     Active Substance: ROSUVASTATIN CALCIUM
     Indication: HYPERLIPIDAEMIA
     Route: 048
     Dates: end: 2013
  2. PLAVIX [Concomitant]
     Active Substance: CLOPIDOGREL BISULFATE
     Dosage: DOSE FORM: PERORAL MEDICINE
     Route: 048
  3. MEXIBAL [Concomitant]
     Dosage: DOSE FORM: PERORAL MEDICINE
     Route: 048
  4. VOGLIBOSE [Concomitant]
     Active Substance: VOGLIBOSE
     Dosage: DOSE FORM: PERORAL MEDICINE
     Route: 048
  5. GLIMEPIRIDE. [Concomitant]
     Active Substance: GLIMEPIRIDE
     Dosage: DOSE FORM: PERORAL MEDICINE
     Route: 048
  6. NIKORANMART [Concomitant]
     Active Substance: NICORANDIL
     Dosage: DOSE FORM: PERORAL MEDICINE
     Route: 048

REACTIONS (1)
  - Purpura [Recovering/Resolving]

NARRATIVE: CASE EVENT DATE: 2013
